FAERS Safety Report 12192230 (Version 1)
Quarter: 2016Q1

REPORT INFORMATION
  Report Type: Spontaneous
  Country: US (occurrence: US)
  Receive Date: 20160318
  Receipt Date: 20160318
  Transmission Date: 20160526
  Serious: No
  Sender: FDA-Public Use
  Company Number: US-PFIZER INC-2016158222

PATIENT
  Age: 62 Year
  Sex: Female
  Weight: 56.25 kg

DRUGS (2)
  1. LYRICA [Suspect]
     Active Substance: PREGABALIN
     Dosage: 225MG TWICE A DAY, MAY HAVE BEEN ON 200MG
  2. OXYCODONE [Concomitant]
     Active Substance: OXYCODONE
     Dosage: UNK
     Dates: start: 2010

REACTIONS (8)
  - Neuralgia [Unknown]
  - Headache [Unknown]
  - Kyphosis [Unknown]
  - Memory impairment [Unknown]
  - Weight decreased [Unknown]
  - Body height decreased [Unknown]
  - Drug withdrawal syndrome [Unknown]
  - Product use issue [Unknown]
